FAERS Safety Report 14386162 (Version 2)
Quarter: 2018Q3

REPORT INFORMATION
  Report Type: Spontaneous
  Country: US (occurrence: US)
  Receive Date: 20180115
  Receipt Date: 20180716
  Transmission Date: 20181010
  Serious: No
  Sender: FDA-Public Use
  Company Number: US-VANDA PHARMACEUTICALS, INC-2017TASUS001931

PATIENT
  Sex: Female

DRUGS (1)
  1. HETLIOZ [Suspect]
     Active Substance: TASIMELTEON
     Indication: CIRCADIAN RHYTHM SLEEP DISORDER
     Dosage: 20 MG, EVERY 24 HOURS AT BEDTIME
     Route: 048
     Dates: start: 20170429

REACTIONS (4)
  - Nasal dryness [Unknown]
  - Drug ineffective [Unknown]
  - Abdominal pain [Unknown]
  - Dry mouth [Unknown]
